FAERS Safety Report 4416183-3 (Version None)
Quarter: 2004Q2

REPORT INFORMATION
  Report Type: 
  Country: None (occurrence: None)
  Receive Date: 20040623
  Receipt Date: 20040324
  Transmission Date: 20050107
  Serious: Yes (Other)
  Sender: FDA-Public Use
  Company Number: WAES 0403USA02251

PATIENT
  Age: 57 Year
  Sex: Male

DRUGS (11)
  1. INVANZ [Suspect]
     Indication: SKIN ULCER
  2. ACCOLATE [Concomitant]
  3. AUGMENTIN '125' [Concomitant]
  4. DITROPAN XL [Concomitant]
  5. DOSE (DANTHRON (+) DOCUSATE SODIUM) [Concomitant]
  6. PRINIVIL [Concomitant]
  7. ASCORBIC ACID [Concomitant]
  8. BACLOFEN [Concomitant]
  9. IBUPROFEN [Concomitant]
  10. VITAMINS (UNSPECIFIED) [Concomitant]
  11. ZINC (UNSPECIFIED) [Concomitant]

REACTIONS (1)
  - CONVULSION [None]
